FAERS Safety Report 18181724 (Version 1)
Quarter: 2020Q3

REPORT INFORMATION
  Report Type: Spontaneous
  Country: GB (occurrence: GB)
  Receive Date: 20200821
  Receipt Date: 20200821
  Transmission Date: 20201103
  Serious: Yes (Other)
  Sender: FDA-Public Use
  Company Number: GB-TEVA-2020-GB-1810265

PATIENT
  Age: 39 Year
  Sex: Female
  Weight: 69.85 kg

DRUGS (5)
  1. VENTOLIN [Concomitant]
     Active Substance: ALBUTEROL SULFATE
  2. SYMBICORT [Concomitant]
     Active Substance: BUDESONIDE\FORMOTEROL FUMARATE DIHYDRATE
  3. MULTIVITAMIN [Concomitant]
     Active Substance: VITAMINS
  4. AMOXICILLIN. [Concomitant]
     Active Substance: AMOXICILLIN
  5. AMLODIPINE [Suspect]
     Active Substance: AMLODIPINE BESYLATE
     Indication: HYPERTENSION
     Dosage: 5 MG
     Route: 048
     Dates: start: 20200612, end: 20200716

REACTIONS (5)
  - Myalgia [Recovering/Resolving]
  - Angina pectoris [Recovering/Resolving]
  - Blood pressure increased [Recovering/Resolving]
  - Feeling hot [Recovering/Resolving]
  - Mental disorder [Recovering/Resolving]

NARRATIVE: CASE EVENT DATE: 20200612
